FAERS Safety Report 8520575 (Version 6)
Quarter: 2013Q2

REPORT INFORMATION
  Report Type: Spontaneous
  Country: US (occurrence: US)
  Receive Date: 20120418
  Receipt Date: 20130517
  Transmission Date: 20140414
  Serious: Yes (Hospitalization, Other)
  Sender: FDA-Public Use
  Company Number: US-009507513-1204USA01891

PATIENT
  Sex: Female
  Weight: 69.84 kg

DRUGS (8)
  1. FOSAMAX [Suspect]
     Indication: OSTEOPOROSIS
     Dosage: 35 MG, QW
     Route: 048
  2. FOSAMAX [Suspect]
     Dosage: 70 MG, QW
     Route: 048
     Dates: start: 20010926, end: 200709
  3. BONIVA [Suspect]
     Indication: OSTEOPOROSIS
     Dosage: 150 MG, CYCLICAL
     Route: 048
     Dates: start: 200710, end: 200910
  4. CALCIUM CITRATE [Concomitant]
     Dosage: 500 MG, UNK
     Dates: start: 1998
  5. OMEGA-3 MARINE TRIGLYCERIDES [Concomitant]
     Dosage: 1000 MG, UNK
     Route: 048
  6. GLUCOSAMINE SULFATE [Concomitant]
     Dosage: 1500 UNK, UNK
     Route: 048
     Dates: start: 1999
  7. PROZAC [Concomitant]
     Indication: DEPRESSION
     Dosage: UNK
     Route: 048
     Dates: start: 1997
  8. PROZAC [Concomitant]
     Indication: ANXIETY

REACTIONS (44)
  - Open reduction of fracture [Unknown]
  - Device failure [Unknown]
  - Fall [Unknown]
  - Iron deficiency anaemia [Unknown]
  - Femur fracture [Unknown]
  - Upper respiratory tract infection [Unknown]
  - Upper respiratory tract infection [Unknown]
  - Hiatus hernia [Not Recovered/Not Resolved]
  - Insomnia [Unknown]
  - Hot flush [Unknown]
  - Restless legs syndrome [Unknown]
  - Contusion [Unknown]
  - Fall [Unknown]
  - Neoplasm skin [Unknown]
  - Osteoarthritis [Unknown]
  - Blood urine [Recovered/Resolved]
  - Blood glucose increased [Unknown]
  - Blood urea increased [Unknown]
  - Polydipsia [Unknown]
  - Dyspnoea [Unknown]
  - Fibrocystic breast disease [Unknown]
  - Non-cardiac chest pain [Unknown]
  - Inappropriate schedule of drug administration [Unknown]
  - Seborrhoeic dermatitis [Unknown]
  - Blood cholesterol increased [Unknown]
  - Blood triglycerides increased [Unknown]
  - Bursitis [Unknown]
  - Intervertebral disc degeneration [Unknown]
  - Osteoarthritis [Unknown]
  - Bursitis [Unknown]
  - Hypoaesthesia [Unknown]
  - Bunion [Unknown]
  - Haemorrhoids [Unknown]
  - Rectal polyp [Unknown]
  - Large intestine polyp [Unknown]
  - Gastric polyps [Unknown]
  - Chest pain [Unknown]
  - Onychomycosis [Unknown]
  - Back pain [Unknown]
  - Arthritis [Unknown]
  - Pain in extremity [Unknown]
  - Abdominal pain upper [Unknown]
  - Arthralgia [Unknown]
  - Gastrooesophageal reflux disease [Not Recovered/Not Resolved]
